FAERS Safety Report 8041044-0 (Version None)
Quarter: 2012Q1

REPORT INFORMATION
  Report Type: 
  Country: None (occurrence: None)
  Receive Date: 20120109
  Receipt Date: 20111227
  Transmission Date: 20120608
  Serious: Yes (Death, Hospitalization, Other)
  Sender: FDA-Public Use
  Company Number: 2011P1015358

PATIENT
  Age: 37 Year
  Sex: Female

DRUGS (4)
  1. NAPROXEN [Concomitant]
  2. CHLOROQUINE (NO PREF. NAME) [Suspect]
     Indication: INTENTIONAL OVERDOSE
  3. FLUVOXAMINE MALEATE [Concomitant]
  4. ZOLPIDEM [Concomitant]

REACTIONS (24)
  - PUPIL FIXED [None]
  - VENTRICULAR FIBRILLATION [None]
  - CARDIAC ARREST [None]
  - TORSADE DE POINTES [None]
  - PURULENCE [None]
  - LUNG CONSOLIDATION [None]
  - TOXICITY TO VARIOUS AGENTS [None]
  - AGITATION [None]
  - APNOEA [None]
  - PNEUMONIA [None]
  - HYPOKALAEMIA [None]
  - NAUSEA [None]
  - LOSS OF CONSCIOUSNESS [None]
  - MYDRIASIS [None]
  - COMPLETED SUICIDE [None]
  - RESTLESSNESS [None]
  - HAEMODYNAMIC INSTABILITY [None]
  - INTENTIONAL OVERDOSE [None]
  - PULSE ABSENT [None]
  - AREFLEXIA [None]
  - VENTRICULAR TACHYCARDIA [None]
  - HYPERNATRAEMIA [None]
  - SINUS TACHYCARDIA [None]
  - COMA SCALE ABNORMAL [None]
